FAERS Safety Report 9688963 (Version 1)
Quarter: 2013Q4

REPORT INFORMATION
  Report Type: Report from Study
  Country: US (occurrence: US)
  Receive Date: 20131114
  Receipt Date: 20131114
  Transmission Date: 20140711
  Serious: Yes (Other)
  Sender: FDA-Public Use
  Company Number: US-GLAXOSMITHKLINE-A1049529A

PATIENT
  Sex: Female

DRUGS (2)
  1. TYKERB [Suspect]
     Indication: HER-2 POSITIVE BREAST CANCER
  2. CAPECITABINE [Suspect]
     Indication: HER-2 POSITIVE BREAST CANCER

REACTIONS (1)
  - Cardiotoxicity [Unknown]
